FAERS Safety Report 9363883 (Version 1)
Quarter: 2013Q2

REPORT INFORMATION
  Report Type: Spontaneous
  Country: TR (occurrence: None)
  Receive Date: 20130618
  Receipt Date: 20130618
  Transmission Date: 20140414
  Serious: Yes (Hospitalization)
  Sender: FDA-Public Use
  Company Number: INT_00263_2013

PATIENT
  Age: 29 Year
  Sex: Male

DRUGS (2)
  1. AMPICILLIN AND SULBACTAM [Suspect]
     Indication: UPPER RESPIRATORY TRACT INFECTION
     Dosage: AMPICILLIN SULBACTAM; ONCE AT NIGHT AND ONCE IN MORNING, INTRAMUSCULAR
  2. AMOXICILLIN W/ CLAVULANATE POTASSIUM [Suspect]
     Indication: UPPER RESPIRATORY TRACT INFECTION
     Dosage: 1 G AMOXICILLIN CLAVULANATE; ONCE AT NIGHT AND ONCE IN MORNING, ORAL
     Route: 048

REACTIONS (10)
  - Dyspnoea [None]
  - Chest pain [None]
  - Oxygen saturation decreased [None]
  - Electrocardiogram ST segment elevation [None]
  - Haemoglobin decreased [None]
  - Troponin I increased [None]
  - Blood creatine phosphokinase increased [None]
  - Blood creatine phosphokinase MB increased [None]
  - Cardiomyopathy [None]
  - Hypersensitivity [None]
